FAERS Safety Report 11180236 (Version 1)
Quarter: 2015Q2

REPORT INFORMATION
  Report Type: Spontaneous
  Country: US (occurrence: None)
  Receive Date: 20150610
  Receipt Date: 20150610
  Transmission Date: 20150821
  Serious: Yes (Hospitalization)
  Sender: FDA-Public Use
  Company Number: None

PATIENT
  Age: 54 Year
  Sex: Male
  Weight: 88.7 kg

DRUGS (2)
  1. WARFARIN [Suspect]
     Active Substance: WARFARIN
     Indication: MITRAL VALVE REPLACEMENT
     Dosage: 8 MG  EVERY DAY PO
     Route: 048
     Dates: start: 20060421
  2. WARFARIN [Suspect]
     Active Substance: WARFARIN
     Indication: ATRIAL FIBRILLATION
     Dosage: 8 MG  EVERY DAY PO
     Route: 048
     Dates: start: 20060421

REACTIONS (2)
  - Haemorrhage [None]
  - Transfusion [None]

NARRATIVE: CASE EVENT DATE: 20121106
